FAERS Safety Report 7311451-X (Version None)
Quarter: 2011Q1

REPORT INFORMATION
  Report Type: 
  Country: None (occurrence: None)
  Receive Date: 20110216
  Receipt Date: 20110216
  Transmission Date: 20110831
  Serious: Yes (Other)
  Sender: FDA-Public Use
  Company Number: None

PATIENT
  Age: 76 Year
  Sex: Female
  Weight: 76.2043 kg

DRUGS (1)
  1. PROLIA [Suspect]
     Dosage: 60 MG EVERY 6 MONTHS SQ
     Route: 058
     Dates: start: 20101111, end: 20110120

REACTIONS (1)
  - BLOOD CALCIUM ABNORMAL [None]
